FAERS Safety Report 9512965 (Version 1)
Quarter: 2013Q1

REPORT INFORMATION
  Report Type: Spontaneous
  Country: US (occurrence: None)
  Receive Date: 20130305
  Receipt Date: 20130305
  Transmission Date: 20140127
  Serious: Yes (Other)
  Sender: FDA-Public Use
  Company Number: 163-21880-12100964

PATIENT
  Age: 90 Year
  Sex: Female

DRUGS (1)
  1. REVLIMID [Suspect]
     Indication: PLASMA CELL MYELOMA
     Dosage: 1 EVERY OTHER DAY X 28 DAYS
     Route: 048
     Dates: start: 20120604

REACTIONS (3)
  - Cold sweat [None]
  - Fall [None]
  - Dyspnoea [None]
